FAERS Safety Report 4823010-9 (Version None)
Quarter: 2005Q4

REPORT INFORMATION
  Report Type: 
  Country: None (occurrence: None)
  Receive Date: 20051108
  Receipt Date: 20051108
  Transmission Date: 20060501
  Serious: Yes (Hospitalization)
  Sender: FDA-Public Use
  Company Number: None

PATIENT
  Sex: Male
  Weight: 85 kg

DRUGS (9)
  1. CYTARABINE [Suspect]
     Indication: ACUTE MYELOID LEUKAEMIA
     Dosage: SEE IMAGE
     Route: 042
     Dates: end: 20051031
  2. CYTARABINE [Suspect]
     Indication: ACUTE MYELOID LEUKAEMIA
     Dosage: SEE IMAGE
     Route: 042
     Dates: start: 20051104
  3. DAUNORUBICIN [Suspect]
     Dosage: SEE IMAGE
     Route: 042
     Dates: end: 20051027
  4. HYDRCORTISONE CREAM [Concomitant]
  5. CEFAPINE [Concomitant]
  6. DIPHENHYDRAMINE HCL [Concomitant]
  7. MUPIROCIN [Concomitant]
  8. PANTOPRAZOLE [Concomitant]
  9. VANCOMYCIN [Concomitant]

REACTIONS (9)
  - ASTHENIA [None]
  - BODY TEMPERATURE INCREASED [None]
  - CHEST PAIN [None]
  - CHILLS [None]
  - HYPOXIA [None]
  - NAUSEA [None]
  - OXYGEN SATURATION DECREASED [None]
  - SEPSIS [None]
  - VOMITING [None]
